FAERS Safety Report 13491026 (Version 4)
Quarter: 2017Q2

REPORT INFORMATION
  Report Type: Report from Study
  Country: ES (occurrence: ES)
  Receive Date: 20170427
  Receipt Date: 20170612
  Transmission Date: 20170830
  Serious: Yes (Hospitalization)
  Sender: FDA-Public Use
  Company Number: ES-ROCHE-1913485

PATIENT
  Age: 60 Year
  Sex: Female
  Weight: 51 kg

DRUGS (38)
  1. LORAZEPAM. [Concomitant]
     Active Substance: LORAZEPAM
     Route: 048
     Dates: start: 20170505
  2. DOPAMINA [Concomitant]
     Indication: PULMONARY OEDEMA
     Dosage: 200MG/5ML
     Route: 042
     Dates: start: 20170327, end: 20170327
  3. AMIKACIN [Concomitant]
     Active Substance: AMIKACIN
     Indication: INFECTION PROPHYLAXIS
     Route: 042
     Dates: start: 20170421, end: 20170421
  4. LISINOPRIL. [Concomitant]
     Active Substance: LISINOPRIL
     Route: 048
     Dates: start: 20170422
  5. METOCLOPRAMIDA [Concomitant]
     Active Substance: METOCLOPRAMIDE HYDROCHLORIDE
     Indication: PROPHYLAXIS OF NAUSEA AND VOMITING
     Dosage: 10MG/2ML
     Route: 042
     Dates: start: 20170321
  6. POTASSIUM CHLORIDE. [Concomitant]
     Active Substance: POTASSIUM CHLORIDE
     Indication: PROPHYLAXIS
     Route: 048
     Dates: start: 20170325, end: 20170327
  7. LOPERAMIDE [Concomitant]
     Active Substance: LOPERAMIDE
     Indication: DIARRHOEA
     Route: 048
     Dates: start: 20170421
  8. SPIRONOLACTONE. [Concomitant]
     Active Substance: SPIRONOLACTONE
     Indication: HYPERTENSION
     Route: 048
     Dates: start: 20170422
  9. RO 6958688 (T-CELL BISPECIFIC MONOCLONAL ANTIBODY) [Suspect]
     Active Substance: INVESTIGATIONAL PRODUCT
     Indication: RECTOSIGMOID CANCER
     Dosage: MOST RECENT DOSE PRIOR TO LEFT VENTRICULAR SYSTOLIC DYSFUNCTION AND FIRST EPISODE OF BILIARY TRACT I
     Route: 042
     Dates: start: 20170301
  10. OMEPRAZOLE. [Concomitant]
     Active Substance: OMEPRAZOLE
     Route: 048
     Dates: start: 20170321, end: 20170323
  11. PARACETAMOL [Concomitant]
     Active Substance: ACETAMINOPHEN
     Indication: PYREXIA
     Dosage: 1000 MG/ 100 ML
     Route: 042
     Dates: start: 20170321
  12. PARACETAMOL [Concomitant]
     Active Substance: ACETAMINOPHEN
     Route: 042
     Dates: start: 20170505
  13. FUROSEMIDA [Concomitant]
     Active Substance: FUROSEMIDE
     Indication: PULMONARY OEDEMA
     Dosage: 20MG/2ML
     Route: 042
     Dates: start: 20170327, end: 20170327
  14. CEFEPIME [Concomitant]
     Active Substance: CEFEPIME HYDROCHLORIDE
     Indication: INFECTION PROPHYLAXIS
     Route: 042
     Dates: start: 20170421, end: 20170421
  15. METOCLOPRAMIDE. [Concomitant]
     Active Substance: METOCLOPRAMIDE
     Indication: NAUSEA
     Route: 042
     Dates: start: 20170421, end: 20170421
  16. OMEPRAZOLE. [Concomitant]
     Active Substance: OMEPRAZOLE
     Route: 042
     Dates: start: 20170323
  17. OMEPRAZOLE. [Concomitant]
     Active Substance: OMEPRAZOLE
     Route: 042
     Dates: start: 20170421
  18. OMEPRAZOLE. [Concomitant]
     Active Substance: OMEPRAZOLE
     Route: 042
     Dates: start: 20170504
  19. ENALAPRIL [Concomitant]
     Active Substance: ENALAPRIL
     Route: 065
     Dates: start: 2015
  20. PHYTOMENADIONE [Concomitant]
     Active Substance: PHYTONADIONE
     Dosage: PROPHYLAXIS BLEEDING
     Route: 042
     Dates: start: 20170505
  21. LORAZEPAM. [Concomitant]
     Active Substance: LORAZEPAM
     Indication: INSOMNIA
     Route: 048
     Dates: start: 20170321
  22. CEFUROXIMA [Concomitant]
     Indication: PROPHYLAXIS
     Route: 048
     Dates: start: 20170408, end: 20170411
  23. CIPROFLOXACIN. [Concomitant]
     Active Substance: CIPROFLOXACIN
     Indication: INFECTION PROPHYLAXIS
     Route: 042
     Dates: start: 20170421, end: 20170424
  24. ENALAPRIL MALEATE AND HYDROCHLOROTHIAZIDE [Concomitant]
     Active Substance: ENALAPRIL MALEATE\HYDROCHLOROTHIAZIDE
     Route: 065
     Dates: start: 2015
  25. PARACETAMOL [Concomitant]
     Active Substance: ACETAMINOPHEN
     Route: 048
     Dates: start: 20170421
  26. ENOXAPARINA [Concomitant]
     Active Substance: ENOXAPARIN
     Indication: PROPHYLAXIS
     Route: 058
     Dates: start: 20170327, end: 20170328
  27. BISOPROLOL [Concomitant]
     Active Substance: BISOPROLOL
     Indication: HYPERTENSION
     Route: 048
     Dates: start: 20170422
  28. OMEPRAZOLE. [Concomitant]
     Active Substance: OMEPRAZOLE
     Indication: PROPHYLAXIS
     Route: 065
     Dates: start: 2015
  29. PHYTOMENADIONE [Concomitant]
     Active Substance: PHYTONADIONE
     Indication: PROPHYLAXIS
     Dosage: 10MG/ML
     Route: 042
     Dates: start: 20170321
  30. ENOXAPARIN [Concomitant]
     Active Substance: ENOXAPARIN
     Indication: BLOOD BILIRUBIN INCREASED
     Dosage: ^TVP^ PROPHYLAXIS
     Route: 058
     Dates: start: 20170504, end: 20170505
  31. METAMIZOLE [Concomitant]
     Active Substance: METAMIZOLE
     Indication: PAIN
     Route: 042
     Dates: start: 20170504, end: 20170505
  32. ATEZOLIZUMAB [Suspect]
     Active Substance: ATEZOLIZUMAB
     Indication: RECTOSIGMOID CANCER
     Dosage: MOST RECENT DOSE PRIOR TO LEFT VENTRICULAR SYSTOLIC DYSFUNCTION AND FIRST EPISODE OF BILIARY TRACT I
     Route: 042
     Dates: start: 20170301
  33. PARACETAMOL [Concomitant]
     Active Substance: ACETAMINOPHEN
     Indication: PAIN
     Route: 065
     Dates: start: 2016
  34. METOCLOPRAMIDE. [Concomitant]
     Active Substance: METOCLOPRAMIDE
     Indication: PROPHYLAXIS OF NAUSEA AND VOMITING
     Route: 042
     Dates: start: 20170504
  35. CLORURO MORFICO [Concomitant]
     Indication: PULMONARY OEDEMA
     Dosage: 10 MG/1ML
     Route: 058
     Dates: start: 20170327
  36. ENOXAPARINA [Concomitant]
     Active Substance: ENOXAPARIN
     Route: 058
     Dates: start: 20170328, end: 20170411
  37. LISINOPRIL. [Concomitant]
     Active Substance: LISINOPRIL
     Indication: HYPERTENSION
     Route: 048
     Dates: start: 20170422
  38. ENOXAPARIN [Concomitant]
     Active Substance: ENOXAPARIN
     Indication: PROPHYLAXIS

REACTIONS (4)
  - Biliary tract infection [Not Recovered/Not Resolved]
  - Left ventricular dysfunction [Recovered/Resolved]
  - Acute kidney injury [Recovered/Resolved]
  - Liver function test increased [Recovered/Resolved]

NARRATIVE: CASE EVENT DATE: 20170321
